FAERS Safety Report 8410753-3 (Version None)
Quarter: 2012Q2

REPORT INFORMATION
  Report Type: 
  Country: None (occurrence: None)
  Receive Date: 20120605
  Receipt Date: 20120524
  Transmission Date: 20120825
  Serious: Yes (Other)
  Sender: FDA-Public Use
  Company Number: US-JNJFOC-20120520454

PATIENT
  Sex: Female

DRUGS (2)
  1. REMICADE [Suspect]
     Indication: PRODUCT USED FOR UNKNOWN INDICATION
     Route: 042
  2. LEVAQUIN [Suspect]
     Indication: PRODUCT USED FOR UNKNOWN INDICATION
     Route: 048
     Dates: start: 20120101, end: 20120101

REACTIONS (6)
  - ERYTHEMA [None]
  - RESPIRATORY DISTRESS [None]
  - INFUSION RELATED REACTION [None]
  - FEELING ABNORMAL [None]
  - CHEST DISCOMFORT [None]
  - ADVERSE EVENT [None]
